FAERS Safety Report 7702132-9 (Version None)
Quarter: 2011Q3

REPORT INFORMATION
  Report Type: 
  Country: None (occurrence: None)
  Receive Date: 20110822
  Receipt Date: 20110815
  Transmission Date: 20111222
  Serious: Yes (Other)
  Sender: FDA-Public Use
  Company Number: US-JNJFOC-20110807341

PATIENT
  Sex: Female

DRUGS (11)
  1. REMICADE [Suspect]
     Indication: CROHN'S DISEASE
     Route: 042
  2. MESALAMINE [Concomitant]
  3. GABAPENTIN [Concomitant]
  4. AZATHIOPRINE [Concomitant]
  5. MACRODANTIN [Concomitant]
  6. PREDNISONE [Concomitant]
  7. SOMATROPIN RDNA [Concomitant]
     Indication: BLOOD GROWTH HORMONE
     Route: 058
  8. OMEPRAZOLE [Concomitant]
  9. LUPRON [Concomitant]
     Route: 030
  10. ETODOLAC [Concomitant]
  11. BACTRIM [Concomitant]
     Dosage: DOSE REPORTED AS 400/80

REACTIONS (1)
  - ASTROCYTOMA [None]
